FAERS Safety Report 8722309 (Version 2)
Quarter: 2013Q4

REPORT INFORMATION
  Report Type: Spontaneous
  Country: JP (occurrence: JP)
  Receive Date: 20120814
  Receipt Date: 20131007
  Transmission Date: 20140711
  Serious: Yes (Life-Threatening)
  Sender: FDA-Public Use
  Company Number: JP-009507513-2010SP050762

PATIENT
  Sex: Male
  Weight: 54 kg

DRUGS (10)
  1. BRIDION [Suspect]
     Indication: NEUROMUSCULAR BLOCKADE REVERSAL
     Dosage: 100 MG, ONCE
     Route: 042
     Dates: start: 20100909, end: 20100909
  2. LIDOCAINE HYDROCHLORIDE [Concomitant]
     Indication: HAEMORRHAGE
     Route: 058
     Dates: start: 20100909, end: 20100909
  3. SOSEGON [Concomitant]
     Indication: ANALGESIC THERAPY
     Dosage: 30 MG, ONCE
     Route: 042
     Dates: start: 20100909, end: 20100909
  4. PACETCOOL [Concomitant]
     Indication: INFECTION PROPHYLAXIS
     Dosage: 1 G, ONCE
     Route: 041
     Dates: start: 20100909, end: 20100909
  5. ROPION [Concomitant]
     Indication: ANALGESIC THERAPY
     Dosage: 50 MG, ONCE
     Route: 042
     Dates: start: 20100909, end: 20100909
  6. ESLAX [Concomitant]
     Indication: NEUROMUSCULAR BLOCKING THERAPY
     Dosage: 30 MG, ONCE
     Route: 042
     Dates: start: 20100909, end: 20100909
  7. CRIXOFOL [Concomitant]
     Indication: SEDATION
     Dosage: 150 MG, ONCE
     Route: 042
     Dates: start: 20100909, end: 20100909
  8. TEGRETOL [Concomitant]
     Indication: CONVULSION
  9. MYSTAN [Concomitant]
     Indication: CONVULSION
  10. SELENICA R [Concomitant]
     Indication: CONVULSION

REACTIONS (5)
  - Anaphylactic reaction [Recovered/Resolved]
  - Oxygen saturation decreased [Recovered/Resolved]
  - Erythema [Recovered/Resolved]
  - Urticaria [Recovered/Resolved]
  - Blood pressure decreased [Recovered/Resolved]
